FAERS Safety Report 24063012 (Version 1)
Quarter: 2024Q3

REPORT INFORMATION
  Report Type: Spontaneous
  Country: CN (occurrence: CN)
  Receive Date: 20240709
  Receipt Date: 20240709
  Transmission Date: 20241017
  Serious: Yes (Other)
  Sender: ROCHE
  Company Number: CN-ROCHE-10000005533

PATIENT
  Age: 72 Year
  Sex: Female

DRUGS (7)
  1. POLATUZUMAB VEDOTIN [Suspect]
     Active Substance: POLATUZUMAB VEDOTIN
     Indication: Diffuse large B-cell lymphoma
     Dosage: SUBSEQUENT DOSE WAS ADMINISTERED ON 07/OCT/2023, 28/OCT/2023, 17/NOV/2023, 13/DEC/2023, 07/JAN/2024,
     Route: 065
     Dates: start: 20230914
  2. RITUXIMAB [Suspect]
     Active Substance: RITUXIMAB
     Indication: Diffuse large B-cell lymphoma
     Dosage: SUBSEQUENT DOSE WAS ADMINISTERED ON 07/OCT/2023, 28/OCT/2023, 17/NOV/2023, 13/DEC/2023, 07/JAN/2024,
     Route: 065
     Dates: start: 20230914
  3. CYCLOPHOSPHAMIDE [Suspect]
     Active Substance: CYCLOPHOSPHAMIDE
     Indication: Diffuse large B-cell lymphoma
     Dosage: SUBSEQUENT DOSE WAS ADMINISTERED ON 07/OCT/2023, 28/OCT/2023, 17/NOV/2023, 13/DEC/2023, 07/JAN/2024,
     Route: 065
     Dates: start: 20230914
  4. DOXORUBICIN [Suspect]
     Active Substance: DOXORUBICIN
     Indication: Diffuse large B-cell lymphoma
     Dosage: SUBSEQUENT DOSE WAS ADMINISTERED ON 07/OCT/2023, 28/OCT/2023, 17/NOV/2023, 13/DEC/2023, 07/JAN/2024,
     Route: 065
     Dates: start: 20230914
  5. PREDNISONE [Suspect]
     Active Substance: PREDNISONE
     Indication: Diffuse large B-cell lymphoma
     Dosage: SUBSEQUENT DOSE WAS ADMINISTERED ON 07/OCT/2023, 28/OCT/2023, 17/NOV/2023, 13/DEC/2023, 07/JAN/2024,
     Route: 065
     Dates: start: 20230914
  6. CEFTIZOXIME [Concomitant]
     Active Substance: CEFTIZOXIME
  7. NEMONOXACIN MALATE [Concomitant]

REACTIONS (4)
  - Small intestinal obstruction [Recovering/Resolving]
  - Neutrophil count decreased [Recovered/Resolved]
  - Haemoglobin decreased [Not Recovered/Not Resolved]
  - Platelet count decreased [Recovered/Resolved]
